FAERS Safety Report 16852938 (Version 1)
Quarter: 2019Q3

REPORT INFORMATION
  Report Type: Spontaneous
  Country: AU (occurrence: AU)
  Receive Date: 20190925
  Receipt Date: 20190925
  Transmission Date: 20191005
  Serious: Yes (Other)
  Sender: FDA-Public Use
  Company Number: AU-009507513-1909AUS007373

PATIENT
  Age: 64 Year
  Sex: Female

DRUGS (6)
  1. CLOFEN [BACLOFEN] [Suspect]
     Active Substance: BACLOFEN
     Dosage: UNK
     Route: 065
     Dates: start: 2012
  2. AMLODIPINE [Suspect]
     Active Substance: AMLODIPINE BESYLATE
     Dosage: UNK
     Route: 065
     Dates: start: 2012
  3. OXYBUTYNIN CHLORIDE. [Suspect]
     Active Substance: OXYBUTYNIN CHLORIDE
     Dosage: UNK
     Route: 065
     Dates: start: 2012
  4. MIRTAZAPINE. [Suspect]
     Active Substance: MIRTAZAPINE
     Dosage: UNK MILLIGRAM
     Dates: start: 201501
  5. GILENYA [Suspect]
     Active Substance: FINGOLIMOD HYDROCHLORIDE
     Indication: SECONDARY PROGRESSIVE MULTIPLE SCLEROSIS
     Dosage: UNK
     Route: 048
     Dates: start: 201607
  6. OLMETEC [Suspect]
     Active Substance: OLMESARTAN MEDOXOMIL
     Dosage: UNK
     Route: 065
     Dates: start: 2012

REACTIONS (6)
  - Blepharospasm [Recovered/Resolved]
  - Pain in extremity [Unknown]
  - Peripheral swelling [Recovered/Resolved]
  - Rash generalised [Recovered/Resolved]
  - Vision blurred [Recovered/Resolved]
  - Weight increased [Unknown]
